FAERS Safety Report 4359917-9 (Version None)
Quarter: 2004Q2

REPORT INFORMATION
  Report Type: 
  Country: None (occurrence: None)
  Receive Date: 20040518
  Receipt Date: 20040421
  Transmission Date: 20050107
  Serious: Yes (Other)
  Sender: FDA-Public Use
  Company Number: PHBS2004JP05562

PATIENT
  Age: 22 Year
  Sex: Female

DRUGS (1)
  1. APRESOLINE [Suspect]
     Indication: HYPERTENSION
     Dosage: 120 MG/DAY
     Route: 048

REACTIONS (24)
  - ABDOMINAL PAIN LOWER [None]
  - ALANINE AMINOTRANSFERASE INCREASED [None]
  - ASPARTATE AMINOTRANSFERASE INCREASED [None]
  - BLOOD BILIRUBIN INCREASED [None]
  - BLOOD CREATININE INCREASED [None]
  - BLOOD LACTATE DEHYDROGENASE INCREASED [None]
  - BLOOD POTASSIUM INCREASED [None]
  - BLOOD UREA INCREASED [None]
  - BRADYCARDIA FOETAL [None]
  - CAESAREAN SECTION [None]
  - COMPLICATIONS OF MATERNAL EXPOSURE TO THERAPEUTIC DRUGS [None]
  - DISSEMINATED INTRAVASCULAR COAGULATION [None]
  - FIBRIN DECREASED [None]
  - FOETAL DISTRESS SYNDROME [None]
  - HAEMOGLOBIN DECREASED [None]
  - HAEMOLYSIS [None]
  - HELLP SYNDROME [None]
  - PLACENTAL DISORDER [None]
  - PLATELET COUNT DECREASED [None]
  - PREMATURE BABY [None]
  - PREMATURE RUPTURE OF MEMBRANES [None]
  - PREMATURE SEPARATION OF PLACENTA [None]
  - PROTHROMBIN TIME SHORTENED [None]
  - URINE OUTPUT DECREASED [None]
